FAERS Safety Report 9454837 (Version 3)
Quarter: 2013Q4

REPORT INFORMATION
  Report Type: Spontaneous
  Country: GB (occurrence: GB)
  Receive Date: 20130813
  Receipt Date: 20131011
  Transmission Date: 20140711
  Serious: Yes (Hospitalization, Other)
  Sender: FDA-Public Use
  Company Number: GB-AMGEN-GBRSP2013054996

PATIENT
  Age: 55 Year
  Sex: Female
  Weight: 70.3 kg

DRUGS (7)
  1. XGEVA [Suspect]
     Indication: METASTASES TO BONE
     Dosage: 120 MG, Q4WK
     Route: 058
     Dates: start: 20130717
  2. XGEVA [Suspect]
     Indication: BONE DISORDER
  3. MEGESTROL [Concomitant]
  4. MORPHINE SULPHATE [Concomitant]
  5. PARACETAMOL [Concomitant]
  6. CAPECITABINE [Concomitant]
     Indication: CHEMOTHERAPY
     Dosage: 1650 MG, BID
     Route: 048
     Dates: start: 20130717
  7. CAPECITABINE [Concomitant]
     Indication: BREAST CANCER METASTATIC

REACTIONS (3)
  - Vasculitis [Recovering/Resolving]
  - Mobility decreased [Unknown]
  - Abasia [Unknown]
